FAERS Safety Report 10851839 (Version 1)
Quarter: 2015Q1

REPORT INFORMATION
  Report Type: Spontaneous
  Country: US (occurrence: US)
  Receive Date: 20150222
  Receipt Date: 20150222
  Transmission Date: 20150721
  Serious: No
  Sender: FDA-Public Use
  Company Number: US-ALLERGAN-1412771US

PATIENT
  Age: 70 Year
  Sex: Female

DRUGS (5)
  1. CLONAZEPAM. [Concomitant]
     Active Substance: CLONAZEPAM
     Indication: DYSTONIA
     Dosage: UNK UNK, QD
     Route: 048
  2. LISINOPRIL. [Concomitant]
     Active Substance: LISINOPRIL
     Indication: HYPERTENSION
     Dosage: UNK UNK, QD
     Route: 048
     Dates: start: 2009
  3. BOTOX [Suspect]
     Active Substance: ONABOTULINUMTOXINA
     Indication: DYSTONIA
     Dosage: 100 UNITS, SINGLE
     Route: 030
     Dates: start: 20140321, end: 20140321
  4. BOTOX [Suspect]
     Active Substance: ONABOTULINUMTOXINA
     Indication: INTERVERTEBRAL DISC DEGENERATION
  5. LEVOTHYROXINE [Concomitant]
     Active Substance: LEVOTHYROXINE
     Indication: RADIOTHERAPY
     Dosage: UNK UNK, QD
     Route: 048
     Dates: start: 2012

REACTIONS (9)
  - Feeling drunk [Unknown]
  - Head discomfort [Unknown]
  - Product use issue [Unknown]
  - Neck pain [Unknown]
  - Gait disturbance [Unknown]
  - Mastication disorder [Unknown]
  - Headache [Unknown]
  - Hearing impaired [Not Recovered/Not Resolved]
  - Insomnia [Unknown]

NARRATIVE: CASE EVENT DATE: 20140321
